FAERS Safety Report 13953765 (Version 2)
Quarter: 2018Q2

REPORT INFORMATION
  Report Type: Spontaneous
  Country: GB (occurrence: GB)
  Receive Date: 20170911
  Receipt Date: 20180417
  Transmission Date: 20180711
  Serious: Yes (Hospitalization)
  Sender: FDA-Public Use
  Company Number: PHHY2017GB131797

PATIENT
  Sex: Female

DRUGS (3)
  1. CLOMIPHENE CITRATE. [Suspect]
     Active Substance: CLOMIPHENE CITRATE
     Indication: POLYCYSTIC OVARIES
     Dosage: 50 MG, UNK
     Route: 065
  2. FEMARA [Suspect]
     Active Substance: LETROZOLE
     Indication: INFERTILITY FEMALE
     Dosage: 2.5 MG, QD
     Route: 048
  3. LETROZOLE. [Suspect]
     Active Substance: LETROZOLE
     Indication: POLYCYSTIC OVARIES
     Dosage: 2.5 MG, 2 TABLETS TWICE DAILY
     Route: 065

REACTIONS (4)
  - Haemorrhagic cyst [Recovered/Resolved]
  - Exposure during pregnancy [Unknown]
  - Therapy non-responder [Unknown]
  - Product use in unapproved indication [Unknown]
